FAERS Safety Report 18106647 (Version 1)
Quarter: 2020Q3

REPORT INFORMATION
  Report Type: Spontaneous
  Country: PL (occurrence: PL)
  Receive Date: 20200803
  Receipt Date: 20200803
  Transmission Date: 20201103
  Serious: Yes (Death, Other)
  Sender: FDA-Public Use
  Company Number: PL-B.I. PHARMACEUTICALS,INC./RIDGEFIELD-2020-BI-038177

PATIENT
  Age: 63 Year
  Sex: Female

DRUGS (2)
  1. GILOTRIF [Suspect]
     Active Substance: AFATINIB
     Indication: LUNG ADENOCARCINOMA
     Route: 065
     Dates: start: 201706, end: 201807
  2. GILOTRIF [Suspect]
     Active Substance: AFATINIB
     Indication: METASTASES TO LIVER

REACTIONS (7)
  - Diarrhoea [Recovered/Resolved]
  - Metastases to bone [Unknown]
  - Hepatic lesion [Unknown]
  - Malignant neoplasm progression [Fatal]
  - Malignant neoplasm progression [Unknown]
  - Dermatitis acneiform [Recovered/Resolved]
  - Paronychia [Recovered/Resolved]

NARRATIVE: CASE EVENT DATE: 201807
